FAERS Safety Report 8867648 (Version 1)
Quarter: 2012Q4

REPORT INFORMATION
  Report Type: 
  Country: US (occurrence: US)
  Receive Date: 20121025
  Receipt Date: 20121025
  Transmission Date: 20130627
  Serious: No
  Sender: FDA-Public Use
  Company Number: US-AMGEN-USASP2012017865

PATIENT
  Sex: Female
  Weight: 97.05 kg

DRUGS (11)
  1. ENBREL [Suspect]
     Indication: PRODUCT USED FOR UNKNOWN INDICATION
     Dosage: 50 mg, qwk
     Route: 058
  2. METHOTREXATE [Concomitant]
     Dosage: 2.5 mg, UNK
  3. FISH OIL [Concomitant]
     Dosage: UNK
  4. FOLIC ACID [Concomitant]
     Dosage: 1 mg, UNK
  5. SERTRALINE [Concomitant]
     Dosage: 100 mg, UNK
  6. TRAMADOL HCL [Concomitant]
     Dosage: 50 mg, UNK
  7. ROPINIROLE [Concomitant]
     Dosage: 0.25 mg, UNK
  8. HYDROXYCHLOROQUINE [Concomitant]
     Dosage: 200 mg, UNK
  9. MULTIVITAMIN                       /01229101/ [Concomitant]
     Dosage: UNK
  10. VITAMIN C                          /00008001/ [Concomitant]
     Dosage: 250 mg, UNK
  11. B COMPLEX                          /06817001/ [Concomitant]
     Dosage: UNK

REACTIONS (1)
  - Injection site pruritus [Unknown]
